FAERS Safety Report 19143983 (Version 1)
Quarter: 2021Q2

REPORT INFORMATION
  Report Type: Spontaneous
  Country: US (occurrence: US)
  Receive Date: 20210416
  Receipt Date: 20210416
  Transmission Date: 20210717
  Serious: Yes (Other)
  Sender: FDA-Public Use
  Company Number: US-CELGENEUS-USA-20210401345

PATIENT
  Sex: Male
  Weight: 72.64 kg

DRUGS (1)
  1. POMALYST [Suspect]
     Active Substance: POMALIDOMIDE
     Indication: PLASMA CELL MYELOMA
     Dosage: 4 MILLIGRAM
     Route: 048

REACTIONS (8)
  - Malaise [Unknown]
  - Weight fluctuation [Unknown]
  - Decreased appetite [Unknown]
  - Squamous cell carcinoma of skin [Unknown]
  - Tremor [Unknown]
  - Body height decreased [Unknown]
  - Dyspnoea [Unknown]
  - Basal cell carcinoma [Unknown]
